FAERS Safety Report 6684174-8 (Version None)
Quarter: 2010Q2

REPORT INFORMATION
  Report Type: 
  Country: None (occurrence: None)
  Receive Date: 20100416
  Receipt Date: 20100414
  Transmission Date: 20101027
  Serious: Yes (Death)
  Sender: FDA-Public Use
  Company Number: PHHY2010MX23158

PATIENT

DRUGS (1)
  1. ALISKIREN ALI+TAB+HT [Suspect]
     Indication: HYPERTENSION
     Dosage: 150 MG, UNK

REACTIONS (1)
  - DEATH [None]
